FAERS Safety Report 13537524 (Version 1)
Quarter: 2017Q2

REPORT INFORMATION
  Report Type: Report from Study
  Country: US (occurrence: US)
  Receive Date: 20170511
  Receipt Date: 20170511
  Transmission Date: 20170830
  Serious: Yes (Death, Hospitalization, Other)
  Sender: FDA-Public Use
  Company Number: US-BAYER-2017-052223

PATIENT
  Age: 58 Year
  Sex: Female

DRUGS (2)
  1. NEXAVAR [Suspect]
     Active Substance: SORAFENIB
     Indication: ACUTE MYELOID LEUKAEMIA RECURRENT
  2. NEXAVAR [Suspect]
     Active Substance: SORAFENIB
     Indication: GRAFT VERSUS HOST DISEASE
     Dosage: 200 MG, BID
     Route: 048
     Dates: start: 20161108

REACTIONS (10)
  - Off label use [None]
  - Lethargy [None]
  - Product use in unapproved indication [None]
  - Metabolic acidosis [None]
  - Atrial fibrillation [None]
  - Death [Fatal]
  - Clostridium difficile colitis [None]
  - Respiratory syncytial virus infection [None]
  - Urinary tract infection bacterial [None]
  - Diarrhoea [None]

NARRATIVE: CASE EVENT DATE: 20170308
